FAERS Safety Report 7335412-X (Version None)
Quarter: 2011Q1

REPORT INFORMATION
  Report Type: 
  Country: None (occurrence: None)
  Receive Date: 20110307
  Receipt Date: 20110303
  Transmission Date: 20110831
  Serious: Yes (Death)
  Sender: FDA-Public Use
  Company Number: PHHO2011IT02891

PATIENT
  Sex: Male
  Weight: 95 kg

DRUGS (9)
  1. BLINDED ENALAPRIL [Suspect]
     Dosage: UNK
     Route: 048
     Dates: start: 20110126
  2. COMPARATOR ENALAPRIL [Suspect]
  3. BLINDED ALISKIREN [Suspect]
     Dosage: UNK
     Route: 048
     Dates: start: 20110126
  4. BLINDED NO TREATMENT RECEIVED [Suspect]
     Dosage: UNK
     Route: 048
     Dates: start: 20110126
  5. ACCURETIC [Concomitant]
  6. NORVASC [Concomitant]
  7. DILADEL [Concomitant]
  8. ATORVASTATIN CALCIUM [Concomitant]
  9. ASA [Concomitant]

REACTIONS (1)
  - DEATH [None]
